FAERS Safety Report 5197220-8 (Version None)
Quarter: 2006Q4

REPORT INFORMATION
  Report Type: 
  Country: None (occurrence: None)
  Receive Date: 20061227
  Receipt Date: 20061212
  Transmission Date: 20070319
  Serious: Yes (Hospitalization, Other)
  Sender: FDA-Public Use
  Company Number: 1343-13420

PATIENT
  Age: 1 Day
  Sex: Female
  Weight: 2.15 kg

DRUGS (6)
  1. VIRACEPT [Suspect]
     Indication: HIV INFECTION
     Dosage: (250 MG), ORAL
     Route: 048
     Dates: end: 19990615
  2. VIDEX [Suspect]
     Indication: HIV INFECTION
     Dosage: ORAL
     Route: 048
     Dates: end: 19990615
  3. ZERIT [Suspect]
     Indication: HIV INFECTION
     Dosage: ORAL
     Route: 048
     Dates: end: 19990615
  4. RETROVIR [Suspect]
     Indication: HIV INFECTION
     Dosage: ORAL
     Route: 048
     Dates: end: 19990712
  5. RETROVIR [Suspect]
     Indication: HIV INFECTION
     Dosage: ORAL
     Route: 048
     Dates: start: 19990712
  6. VIRAMUNE [Suspect]
     Indication: HIV INFECTION
     Dosage: ORAL
     Route: 048

REACTIONS (9)
  - CAESAREAN SECTION [None]
  - DRUG EXPOSURE DURING PREGNANCY [None]
  - FOETAL DISTRESS SYNDROME [None]
  - HIV TEST POSITIVE [None]
  - LACTATE PYRUVATE RATIO INCREASED [None]
  - NYSTAGMUS [None]
  - PYRAMIDAL TRACT SYNDROME [None]
  - SMALL FOR DATES BABY [None]
  - URINE CYTOMEGALOVIRUS POSITIVE [None]
